FAERS Safety Report 11073605 (Version 1)
Quarter: 2015Q2

REPORT INFORMATION
  Report Type: Spontaneous
  Country: SE (occurrence: SE)
  Receive Date: 20150428
  Receipt Date: 20150428
  Transmission Date: 20150821
  Serious: Yes (Life-Threatening)
  Sender: FDA-Public Use
  Company Number: SE-TEVA-558366ISR

PATIENT
  Age: 62 Year
  Sex: Female

DRUGS (1)
  1. METFORMIN TABLET [Suspect]
     Active Substance: METFORMIN HYDROCHLORIDE

REACTIONS (5)
  - Abdominal pain [Recovered/Resolved]
  - Listless [Recovered/Resolved]
  - Fatigue [Recovered/Resolved]
  - Pancreatitis [Recovered/Resolved]
  - Hepatitis [Recovered/Resolved]
